FAERS Safety Report 5015389-2 (Version None)
Quarter: 2006Q2

REPORT INFORMATION
  Report Type: 
  Country: None (occurrence: None)
  Receive Date: 20060530
  Receipt Date: 20060530
  Transmission Date: 20061013
  Serious: No
  Sender: FDA-Public Use
  Company Number: None

PATIENT
  Age: 67 Year
  Sex: Female
  Weight: 92.5338 kg

DRUGS (1)
  1. REQUIP  1 MG.  GLAXO SMITH [Suspect]
     Indication: RESTLESS LEGS SYNDROME
     Dosage: 1 TABLET TAKEN AT BEDTIME PO
     Route: 048
     Dates: start: 20060505, end: 20060528

REACTIONS (3)
  - CHEST DISCOMFORT [None]
  - CRYING [None]
  - HEADACHE [None]
